FAERS Safety Report 5621067-9 (Version None)
Quarter: 2008Q1

REPORT INFORMATION
  Report Type: 
  Country: None (occurrence: None)
  Receive Date: 20080208
  Receipt Date: 20080130
  Transmission Date: 20080703
  Serious: Yes (Other)
  Sender: FDA-Public Use
  Company Number: JP-PFIZER INC-2008010994

PATIENT
  Age: 38 Year
  Sex: Male

DRUGS (1)
  1. SOLU-CORTEF [Suspect]
     Dosage: DAILY DOSE:100MG

REACTIONS (2)
  - HYPERSENSITIVITY [None]
  - RESPIRATORY ARREST [None]
